FAERS Safety Report 4589397-X (Version None)
Quarter: 2005Q1

REPORT INFORMATION
  Report Type: 
  Country: None (occurrence: None)
  Receive Date: 20050216
  Receipt Date: 20050118
  Transmission Date: 20050727
  Serious: Yes (Hospitalization, Other)
  Sender: FDA-Public Use
  Company Number: USA041080924

PATIENT
  Age: 71 Year
  Sex: Female

DRUGS (1)
  1. FORTEO [Suspect]
     Indication: OSTEOPOROSIS
     Dates: start: 20040929

REACTIONS (7)
  - ACUTE LYMPHOCYTIC LEUKAEMIA [None]
  - BACK PAIN [None]
  - FEELING COLD [None]
  - PALPITATIONS [None]
  - PULSE ABNORMAL [None]
  - SLEEP DISORDER [None]
  - TREMOR [None]
